FAERS Safety Report 24525076 (Version 2)
Quarter: 2025Q3

REPORT INFORMATION
  Report Type: Spontaneous
  Country: US (occurrence: US)
  Receive Date: 20241019
  Receipt Date: 20250717
  Transmission Date: 20251021
  Serious: No
  Sender: SANOFI AVENTIS
  Company Number: US-SA-2024SA294010

PATIENT
  Age: 68 Year
  Sex: Female

DRUGS (1)
  1. DUPIXENT [Suspect]
     Active Substance: DUPILUMAB
     Indication: Dermatitis atopic
     Dosage: 200 MG, BIM
     Route: 058
     Dates: start: 20170501

REACTIONS (3)
  - Hypersensitivity [Unknown]
  - Dermatitis [Unknown]
  - Therapeutic response decreased [Unknown]
